FAERS Safety Report 6656734-1 (Version None)
Quarter: 2010Q1

REPORT INFORMATION
  Report Type: 
  Country: None (occurrence: None)
  Receive Date: 20100329
  Receipt Date: 20090921
  Transmission Date: 20100710
  Serious: No
  Sender: FDA-Public Use
  Company Number: US-BAUSCH-2009BL004781

PATIENT
  Age: 79 Year
  Sex: Female

DRUGS (3)
  1. POLYMYXIN B SULFATES AND TRIMETHOPRIM SULFATE [Suspect]
     Indication: DRY EYE
     Route: 047
     Dates: start: 20090919, end: 20090919
  2. COUMADIN [Concomitant]
  3. ADVANCED EYE RELIEF/DRY EYE/REJUVENATION LUBRICANT EYE DROPS [Concomitant]

REACTIONS (3)
  - EXPIRED DRUG ADMINISTERED [None]
  - EYE IRRITATION [None]
  - WRONG DRUG ADMINISTERED [None]
